FAERS Safety Report 8037275-6 (Version None)
Quarter: 2012Q1

REPORT INFORMATION
  Report Type: 
  Country: None (occurrence: None)
  Receive Date: 20120111
  Receipt Date: 20120106
  Transmission Date: 20120608
  Serious: Yes (Death)
  Sender: FDA-Public Use
  Company Number: IE-MERCK-1201GBR00017

PATIENT
  Sex: Female

DRUGS (2)
  1. NOXAFIL [Suspect]
     Route: 065
  2. CANCIDAS [Suspect]
     Route: 041

REACTIONS (2)
  - ACUTE LYMPHOCYTIC LEUKAEMIA [None]
  - ASPERGILLOSIS [None]
